FAERS Safety Report 6697340-2 (Version None)
Quarter: 2010Q2

REPORT INFORMATION
  Report Type: 
  Country: None (occurrence: None)
  Receive Date: 20100426
  Receipt Date: 20100416
  Transmission Date: 20101027
  Serious: Yes (Death)
  Sender: FDA-Public Use
  Company Number: PL-PFIZER INC-2008018211

PATIENT
  Age: 65 Year
  Sex: Male
  Weight: 64 kg

DRUGS (14)
  1. IRINOTECAN HCL [Suspect]
     Indication: COLORECTAL CANCER
     Dosage: 248 MG, EVERY 2 WEEKS
     Route: 042
     Dates: start: 20071031
  2. *FLUOROURACIL [Suspect]
     Indication: COLORECTAL CANCER
     Dosage: 550 MG, EVERY 2 WEEKS
     Route: 040
     Dates: start: 20071031, end: 20080206
  3. *FLUOROURACIL [Suspect]
     Dosage: 3302 MG, EVERY 2 WEEKS
     Route: 041
     Dates: start: 20071031, end: 20080208
  4. *CALCIUM FOLINATE [Suspect]
     Indication: COLORECTAL CANCER
     Dosage: 275 MG, EVERY 2 WEEKS
     Route: 042
     Dates: start: 20071031
  5. *PLACEBO [Suspect]
     Indication: COLORECTAL CANCER
     Dosage: 0 MG, 1X/DAY
     Route: 048
     Dates: start: 20071031, end: 20080219
  6. ONDANSETRON [Concomitant]
     Indication: PROPHYLAXIS
     Dates: start: 20080206
  7. METOCLOPRAMIDE HYDROCHLORIDE [Concomitant]
     Indication: PROPHYLAXIS
     Dates: start: 20080206
  8. OMEPRAZOLE [Concomitant]
     Indication: PROPHYLAXIS
     Dates: start: 20080129
  9. FENTANYL [Concomitant]
     Indication: PAIN
     Dosage: 25 UG/HOUR
     Dates: start: 20080204
  10. KETOPROFEN [Concomitant]
     Indication: PAIN
     Dates: start: 20080204, end: 20080207
  11. METRONIDAZOLE [Concomitant]
     Indication: DIARRHOEA
     Dates: start: 20080207
  12. TIANEPTINE [Concomitant]
     Indication: DEPRESSION
     Dates: start: 20080204
  13. ATROPINE [Concomitant]
     Indication: PREMEDICATION
     Dates: start: 20080206, end: 20080206
  14. TRAMADOL HCL [Concomitant]
     Indication: PAIN
     Dates: start: 20080205

REACTIONS (1)
  - DEATH [None]
